FAERS Safety Report 20643816 (Version 1)
Quarter: 2022Q1

REPORT INFORMATION
  Report Type: Spontaneous
  Country: US (occurrence: None)
  Receive Date: 20220327
  Receipt Date: 20220327
  Transmission Date: 20220423
  Serious: No
  Sender: FDA-Public Use
  Company Number: None

PATIENT
  Age: 23 Year
  Sex: Female
  Weight: 60.75 kg

DRUGS (1)
  1. MACROBID [Suspect]
     Active Substance: NITROFURANTOIN\NITROFURANTOIN MONOHYDRATE
     Indication: Urinary tract infection
     Dates: start: 20220324, end: 20220327

REACTIONS (14)
  - Tenderness [None]
  - Abdominal pain [None]
  - Dysphonia [None]
  - Cough [None]
  - Decreased appetite [None]
  - Fatigue [None]
  - Back pain [None]
  - Neck pain [None]
  - Headache [None]
  - Chest pain [None]
  - Dyspepsia [None]
  - Fatigue [None]
  - Asthenia [None]
  - Dyspnoea [None]

NARRATIVE: CASE EVENT DATE: 20220324
